FAERS Safety Report 5040303-3 (Version None)
Quarter: 2006Q2

REPORT INFORMATION
  Report Type: 
  Country: None (occurrence: None)
  Receive Date: 20060630
  Receipt Date: 20060413
  Transmission Date: 20061013
  Serious: No
  Sender: FDA-Public Use
  Company Number: US-BRISTOL-MYERS SQUIBB COMPANY-13346598

PATIENT
  Sex: Female

DRUGS (1)
  1. ORENCIA [Suspect]
     Route: 042

REACTIONS (3)
  - FEELING HOT [None]
  - FLUSHING [None]
  - HEADACHE [None]
